FAERS Safety Report 4944060-8 (Version None)
Quarter: 2006Q1

REPORT INFORMATION
  Report Type: 
  Country: None (occurrence: None)
  Receive Date: 20060315
  Receipt Date: 20060302
  Transmission Date: 20060701
  Serious: Yes (Hospitalization, Other)
  Sender: FDA-Public Use
  Company Number: GB-JNJFOC-20060301053

PATIENT
  Age: 60 Year
  Sex: Female

DRUGS (2)
  1. TRAMADOL HCL [Suspect]
     Indication: BACK PAIN
     Route: 048
  2. GLUCOSAMINE [Concomitant]
     Route: 048

REACTIONS (2)
  - BLOOD SODIUM DECREASED [None]
  - EPILEPSY [None]
